FAERS Safety Report 6529814-9 (Version None)
Quarter: 2010Q1

REPORT INFORMATION
  Report Type: 
  Country: None (occurrence: None)
  Receive Date: 20100107
  Receipt Date: 20100104
  Transmission Date: 20100710
  Serious: Yes (Hospitalization)
  Sender: FDA-Public Use
  Company Number: A0837406A

PATIENT
  Sex: Female

DRUGS (4)
  1. TYKERB [Suspect]
     Indication: BREAST CANCER
     Dosage: 5TAB TWICE PER DAY
     Route: 048
     Dates: start: 20091214
  2. XELODA [Concomitant]
  3. BLOOD PRESSURE MEDICINES [Concomitant]
  4. ARTHRITIS MEDICATION [Concomitant]

REACTIONS (3)
  - DEHYDRATION [None]
  - DIARRHOEA [None]
  - STOMATITIS [None]
